FAERS Safety Report 4462403-9 (Version None)
Quarter: 2004Q3

REPORT INFORMATION
  Report Type: 
  Country: None (occurrence: None)
  Receive Date: 20040924
  Receipt Date: 20040908
  Transmission Date: 20050211
  Serious: Yes (Other)
  Sender: FDA-Public Use
  Company Number: 6010491

PATIENT
  Age: 71 Year
  Sex: Male

DRUGS (2)
  1. METFORMIN HYDROCHLORIDE [Suspect]
     Dosage: 1000,0 MG (1000 MG, 1 IN 1 D)
     Route: 048
     Dates: start: 20031101
  2. METFORMIN HYDROCHLORIDE [Suspect]
     Dosage: 1000,0 MG (1000 MG, 1 IN 1 D)
     Route: 048
     Dates: start: 20040101

REACTIONS (2)
  - HYPERGLYCAEMIA [None]
  - URTICARIA GENERALISED [None]
